APPROVED DRUG PRODUCT: FLUOROURACIL
Active Ingredient: FLUOROURACIL
Strength: 50MG/ML
Dosage Form/Route: INJECTABLE;INJECTION
Application: A040379 | Product #001
Applicant: FRESENIUS KABI USA LLC
Approved: Nov 15, 2000 | RLD: No | RS: No | Type: DISCN